FAERS Safety Report 4274000-9 (Version None)
Quarter: 2004Q1

REPORT INFORMATION
  Report Type: 
  Country: None (occurrence: None)
  Receive Date: 20040115
  Receipt Date: 20040106
  Transmission Date: 20041129
  Serious: Yes (Hospitalization, Other)
  Sender: FDA-Public Use
  Company Number: 2004001054

PATIENT
  Age: 12 Month
  Sex: Male

DRUGS (12)
  1. VFEND [Suspect]
     Indication: INFECTION
     Dosage: 80 MG, ORAL
     Route: 048
     Dates: start: 20031001, end: 20031203
  2. ACENOCOUMAROL (ACENOCOUMAROL) [Suspect]
     Indication: ANTICOAGULANT THERAPY
     Dosage: ORAL
     Route: 048
     Dates: start: 20030928
  3. TACROLIMUS (TACROLIMUS) [Suspect]
     Indication: PROPHYLAXIS AGAINST TRANSPLANT REJECTION
     Dosage: 2.8 MG, ORAL
     Route: 048
     Dates: start: 20030927
  4. MYCOPHENOLATE MOFETIL [Concomitant]
  5. PREDNISOLONE [Concomitant]
  6. ENALAPRIL MALEATE [Concomitant]
  7. NIFEDIPINE [Concomitant]
  8. PROPRANOLOL [Concomitant]
  9. BACTRIM [Concomitant]
  10. ACYCLOVIR [Concomitant]
  11. CALCITRIOL [Concomitant]
  12. FOLIC ACID [Concomitant]

REACTIONS (3)
  - DRUG INTERACTION [None]
  - DRUG LEVEL INCREASED [None]
  - INTERNATIONAL NORMALISED RATIO INCREASED [None]
